FAERS Safety Report 8930627 (Version 1)
Quarter: 2012Q4

REPORT INFORMATION
  Report Type: 
  Country: IT (occurrence: IT)
  Receive Date: 20121128
  Receipt Date: 20121128
  Transmission Date: 20130627
  Serious: Yes (Hospitalization)
  Sender: FDA-Public Use
  Company Number: IT-ASTRAZENECA-2012SE88173

PATIENT
  Age: 20228 Day
  Sex: Female

DRUGS (3)
  1. CRESTOR [Suspect]
     Indication: HYPERCHOLESTEROLAEMIA
     Route: 048
     Dates: start: 20090101, end: 2011
  2. CRESTOR [Suspect]
     Indication: HYPERCHOLESTEROLAEMIA
     Route: 048
     Dates: end: 20121119
  3. SIMVASTATIN [Concomitant]

REACTIONS (3)
  - Pain [Recovering/Resolving]
  - Breast pain [Recovering/Resolving]
  - Myalgia [Unknown]
